FAERS Safety Report 15234305 (Version 1)
Quarter: 2018Q3

REPORT INFORMATION
  Report Type: Report from Study
  Country: None (occurrence: US)
  Receive Date: 20180803
  Receipt Date: 20180803
  Transmission Date: 20181010
  Serious: Yes (Other)
  Sender: FDA-Public Use
  Company Number: US-ABBVIE-18K-163-2371148-00

PATIENT
  Sex: Female

DRUGS (5)
  1. FOLATE [Concomitant]
     Active Substance: FOLATE SODIUM
     Indication: RHEUMATOID ARTHRITIS
  2. MIRALAX [Suspect]
     Active Substance: POLYETHYLENE GLYCOL 3350
     Indication: PRODUCT USED FOR UNKNOWN INDICATION
     Route: 065
  3. EYLEA [Concomitant]
     Active Substance: AFLIBERCEPT
     Indication: THROMBOSIS
     Dates: start: 2018
  4. METHOTREXATE. [Concomitant]
     Active Substance: METHOTREXATE
     Indication: JOINT SWELLING
  5. HUMIRA [Suspect]
     Active Substance: ADALIMUMAB
     Indication: RHEUMATOID ARTHRITIS
     Route: 058
     Dates: start: 201712

REACTIONS (5)
  - Gastrointestinal motility disorder [Not Recovered/Not Resolved]
  - Injection site pain [Unknown]
  - Inhibitory drug interaction [Unknown]
  - Joint swelling [Not Recovered/Not Resolved]
  - Visual impairment [Not Recovered/Not Resolved]

NARRATIVE: CASE EVENT DATE: 2018
